FAERS Safety Report 20215462 (Version 2)
Quarter: 2022Q1

REPORT INFORMATION
  Report Type: Report from Study
  Country: FR (occurrence: FR)
  Receive Date: 20211222
  Receipt Date: 20220111
  Transmission Date: 20220423
  Serious: Yes (Hospitalization)
  Sender: FDA-Public Use
  Company Number: FR-JNJFOC-20211237018

PATIENT
  Age: 26 Year
  Sex: Male
  Weight: 60 kg

DRUGS (11)
  1. INFLIXIMAB [Suspect]
     Active Substance: INFLIXIMAB
     Indication: Crohn^s disease
     Route: 042
     Dates: start: 20100820, end: 20160426
  2. CEFOTAXIME [Concomitant]
     Active Substance: CEFOTAXIME SODIUM
  3. FLAGYL [Concomitant]
     Active Substance: METRONIDAZOLE\METRONIDAZOLE HYDROCHLORIDE
  4. KETAMINE [Concomitant]
     Active Substance: KETAMINE
  5. TRAMADOL [Concomitant]
     Active Substance: TRAMADOL
  6. ONDANSETRON [Concomitant]
     Active Substance: ONDANSETRON
  7. LIDOCAINE [Concomitant]
     Active Substance: LIDOCAINE
  8. MIDAZOLAM [Concomitant]
     Active Substance: MIDAZOLAM
  9. ACETAMINOPHEN [Concomitant]
     Active Substance: ACETAMINOPHEN
  10. METRONIDAZOLE [Concomitant]
     Active Substance: METRONIDAZOLE
  11. DROPERIDOL [Concomitant]
     Active Substance: DROPERIDOL

REACTIONS (1)
  - Intestinal fistula [Recovered/Resolved]

NARRATIVE: CASE EVENT DATE: 20201005
